FAERS Safety Report 9008049 (Version 1)
Quarter: 2012Q4

REPORT INFORMATION
  Report Type: Spontaneous
  Country: HK (occurrence: None)
  Receive Date: 20121227
  Receipt Date: 20121227
  Transmission Date: 20130627
  Serious: Yes (Other)
  Sender: FDA-Public Use
  Company Number: 1540011

PATIENT
  Age: 8 Year
  Sex: Female

DRUGS (10)
  1. METHOTREXATE [Suspect]
     Indication: PROPHYLAXIS AGAINST GRAFT VERSUS HOST DISEASE
  2. BUSULFAN [Suspect]
     Indication: BONE MARROW CONDITIONING REGIMEN
  3. CYCLOPHOSPHAMIDE [Suspect]
     Indication: BONE MARROW CONDITIONING REGIMEN
  4. ANTITHYMOCYTE IMMUNOGLOBULIN [Suspect]
     Indication: PROPHYLAXIS AGAINST GRAFT VERSUS HOST DISEASE
  5. CYCLOSPORIN A [Suspect]
     Indication: PROPHYLAXIS AGAINST GRAFT VERSUS HOST DISEASE
  6. CORTICOSTEROIDS [Suspect]
     Indication: IMMUNOSUPPRESSANT DRUG THERAPY
  7. TACROLIMUS [Suspect]
     Indication: IMMUNOSUPPRESSANT DRUG THERAPY
  8. FLUCONAZOLE [Concomitant]
  9. ACYCLOVIR /00587301/ [Concomitant]
  10. COTRIMOXAZOLE [Concomitant]

REACTIONS (10)
  - Acute graft versus host disease in skin [None]
  - Acute graft versus host disease in intestine [None]
  - Chronic graft versus host disease in skin [None]
  - Chronic graft versus host disease in intestine [None]
  - Candidiasis [None]
  - Respiratory syncytial virus infection [None]
  - Parainfluenzae virus infection [None]
  - Gastroenteritis norovirus [None]
  - Infection in an immunocompromised host [None]
  - Drug interaction [None]
